FAERS Safety Report 5463940-0 (Version None)
Quarter: 2007Q3

REPORT INFORMATION
  Report Type: 
  Country: None (occurrence: None)
  Receive Date: 20070921
  Receipt Date: 20070914
  Transmission Date: 20080115
  Serious: Yes (Hospitalization)
  Sender: FDA-Public Use
  Company Number: US-AVENTIS-200718314GDDC

PATIENT
  Age: 59 Year
  Sex: Female
  Weight: 90.4 kg

DRUGS (9)
  1. DOCETAXEL [Suspect]
     Indication: BREAST CANCER
     Route: 042
     Dates: start: 20070830, end: 20070830
  2. BEVACIZUMAB [Suspect]
     Indication: BREAST CANCER
     Route: 042
     Dates: start: 20070830, end: 20070830
  3. CYCLOPHOSPHAMIDE [Suspect]
     Indication: BREAST CANCER
     Route: 042
     Dates: start: 20070830, end: 20070830
  4. DOXORUBICIN HCL [Suspect]
     Indication: BREAST CANCER
     Route: 042
     Dates: start: 20070830, end: 20070830
  5. LEXAPRO [Concomitant]
     Route: 048
  6. CITRICAL [Concomitant]
     Dosage: DOSE: UNK
  7. MULTI-VITAMINS [Concomitant]
     Dosage: DOSE: UNK
  8. ASCORBIC ACID [Concomitant]
     Dosage: DOSE: UNK
  9. VITAMIN B-12 [Concomitant]
     Dosage: DOSE: UNK
     Route: 030

REACTIONS (7)
  - CHOLELITHIASIS [None]
  - COLITIS [None]
  - DEHYDRATION [None]
  - DIARRHOEA [None]
  - FEBRILE NEUTROPENIA [None]
  - HYPOKALAEMIA [None]
  - SEPTIC SHOCK [None]
